FAERS Safety Report 9088664 (Version 1)
Quarter: 2013Q1

REPORT INFORMATION
  Report Type: Spontaneous
  Country: US (occurrence: US)
  Receive Date: 20130201
  Receipt Date: 20130201
  Transmission Date: 20140127
  Serious: Yes (Hospitalization)
  Sender: FDA-Public Use
  Company Number: US-B.I. PHARMACEUTICALS,INC./RIDGEFIELD-2013-BI-02422BP

PATIENT
  Age: 63 Year
  Sex: Female
  Weight: 125.6 kg

DRUGS (13)
  1. MOBIC [Suspect]
     Indication: PAIN
     Dosage: 15 MG
     Route: 048
     Dates: start: 2012, end: 20120702
  2. NERATINIB [Suspect]
     Indication: BREAST CANCER
     Dates: start: 20110819
  3. ACCUPRIL [Suspect]
     Indication: HYPERTENSION
     Dosage: 40 MG
     Route: 048
     Dates: start: 2008, end: 20120702
  4. SYNTHROID [Concomitant]
     Dates: start: 2008
  5. DETROL LA [Concomitant]
     Dates: start: 2008
  6. TOPROL [Concomitant]
     Dates: start: 2008
  7. HCTZ [Concomitant]
     Dates: start: 2008
  8. FEMARA [Concomitant]
     Dates: start: 20110604
  9. TRIAMCINOLONE [Concomitant]
     Dates: start: 20111223
  10. HYDROXIZINE [Concomitant]
     Dates: start: 20111223
  11. BACTRIM [Concomitant]
     Dates: start: 20111206, end: 20120727
  12. BENADRYL [Concomitant]
     Dates: start: 20111223
  13. ZOLPIDEM [Concomitant]

REACTIONS (1)
  - Renal failure acute [Recovered/Resolved]
